FAERS Safety Report 11003799 (Version 1)
Quarter: 2015Q2

REPORT INFORMATION
  Report Type: Spontaneous
  Country: US (occurrence: None)
  Receive Date: 20150408
  Receipt Date: 20150408
  Transmission Date: 20150821
  Serious: No
  Sender: FDA-Public Use
  Company Number: None

PATIENT
  Age: 66 Year
  Sex: Male

DRUGS (1)
  1. STIVARGA [Suspect]
     Active Substance: REGORAFENIB
     Indication: COLON CANCER
     Dosage: BY MOUTH
     Dates: start: 20150324

REACTIONS (5)
  - Blister [None]
  - Abasia [None]
  - Erythema [None]
  - Palmar-plantar erythrodysaesthesia syndrome [None]
  - Dry skin [None]

NARRATIVE: CASE EVENT DATE: 20150406
